FAERS Safety Report 11637544 (Version 1)
Quarter: 2015Q4

REPORT INFORMATION
  Report Type: Spontaneous
  Country: US (occurrence: US)
  Receive Date: 20151016
  Receipt Date: 20151016
  Transmission Date: 20160304
  Serious: No
  Sender: FDA-Public Use
  Company Number: US-ENDO PHARMACEUTICALS INC.-2015-002359

PATIENT
  Age: 29 Year
  Sex: Female
  Weight: 56.75 kg

DRUGS (2)
  1. FENTANYL. [Concomitant]
     Active Substance: FENTANYL
     Indication: EHLERS-DANLOS SYNDROME
  2. OXYCODONE/ACETAMINOPHEN TABLETS 10MG/325MG [Suspect]
     Active Substance: ACETAMINOPHEN\OXYCODONE HYDROCHLORIDE
     Indication: EHLERS-DANLOS SYNDROME
     Dosage: ONE TABLET (10/325 MG) THREE TIMES DAILY FOR BREAKTHROUGH PAIN
     Route: 048
     Dates: start: 201410

REACTIONS (1)
  - Drug ineffective [Not Recovered/Not Resolved]

NARRATIVE: CASE EVENT DATE: 20150729
